FAERS Safety Report 4326484-5 (Version None)
Quarter: 2004Q1

REPORT INFORMATION
  Report Type: 
  Country: None (occurrence: None)
  Receive Date: 20040324
  Receipt Date: 20040309
  Transmission Date: 20041129
  Serious: Yes (Life-Threatening, Hospitalization)
  Sender: FDA-Public Use
  Company Number: 04P-083-0253495-00

PATIENT
  Age: 74 Year
  Sex: Female

DRUGS (4)
  1. ISOPTIN SR [Suspect]
     Indication: HYPERTENSION
     Dosage: 240 MG, 1 IN 1 D, ORAL
     Route: 048
     Dates: start: 19970430
  2. GLICLAZIDE [Concomitant]
  3. BETAHISTINE HYDROCHLORIDE [Concomitant]
  4. ASPIRIN [Concomitant]

REACTIONS (4)
  - CEREBRAL INFARCTION [None]
  - DEEP VEIN THROMBOSIS [None]
  - HYPOTENSION [None]
  - PULMONARY EMBOLISM [None]
